FAERS Safety Report 19624851 (Version 3)
Quarter: 2021Q3

REPORT INFORMATION
  Report Type: Other
  Country: SE (occurrence: SE)
  Receive Date: 20210729
  Receipt Date: 20210906
  Transmission Date: 20211014
  Serious: Yes (Other)
  Sender: FDA-Public Use
  Company Number: SE-ROCHE-2855741

PATIENT
  Sex: Female

DRUGS (4)
  1. RITUXIMAB. [Suspect]
     Active Substance: RITUXIMAB
     Indication: POST TRANSPLANT LYMPHOPROLIFERATIVE DISORDER
     Dosage: WEEKLY DOSES OF RITUXIMAB DURING FOUR CONSECUTIVE WEEKS
     Route: 065
     Dates: start: 2020
  2. TACROLIMUS. [Suspect]
     Active Substance: TACROLIMUS
     Indication: IMMUNOSUPPRESSANT DRUG THERAPY
     Route: 065
     Dates: start: 201906
  3. PREDNISOLONE. [Suspect]
     Active Substance: PREDNISOLONE
     Indication: IMMUNOSUPPRESSANT DRUG THERAPY
     Route: 065
     Dates: start: 201906
  4. TRAMETINIB [Suspect]
     Active Substance: TRAMETINIB
     Indication: HEPATIC ANGIOSARCOMA
     Route: 065

REACTIONS (9)
  - Adenovirus infection [Unknown]
  - Vaccine virus shedding [Unknown]
  - Rhinovirus infection [Unknown]
  - SARS-CoV-2 test positive [Not Recovered/Not Resolved]
  - COVID-19 [Not Recovered/Not Resolved]
  - Decreased immune responsiveness [Unknown]
  - Polymerase chain reaction positive [Unknown]
  - B-lymphocyte count decreased [Unknown]
  - Off label use [Unknown]

NARRATIVE: CASE EVENT DATE: 2020
